FAERS Safety Report 10183586 (Version 2)
Quarter: 2015Q1

REPORT INFORMATION
  Report Type: Report from Study
  Country: US (occurrence: US)
  Receive Date: 20140520
  Receipt Date: 20150312
  Transmission Date: 20150720
  Serious: Yes (Death)
  Sender: FDA-Public Use
  Company Number: US-ALEXION-A200800654

PATIENT

DRUGS (1)
  1. SOLIRIS [Suspect]
     Active Substance: ECULIZUMAB
     Indication: PAROXYSMAL NOCTURNAL HAEMOGLOBINURIA
     Dosage: UNK
     Route: 042

REACTIONS (5)
  - Fatigue [Recovering/Resolving]
  - Haemoglobinuria [Recovered/Resolved]
  - Gallbladder disorder [Fatal]
  - Dysphagia [Recovered/Resolved]
  - Haemoglobin decreased [Unknown]
